FAERS Safety Report 25708200 (Version 1)
Quarter: 2025Q3

REPORT INFORMATION
  Report Type: Spontaneous
  Country: EU (occurrence: EU)
  Receive Date: 20250821
  Receipt Date: 20250821
  Transmission Date: 20251021
  Serious: Yes (Other)
  Sender: TEVA
  Company Number: None

PATIENT
  Age: 76 Year
  Sex: Male

DRUGS (5)
  1. PANTOPRAZOLE [Suspect]
     Active Substance: PANTOPRAZOLE
     Indication: Prophylaxis
     Route: 048
     Dates: start: 20250527, end: 20250715
  2. FOLIC ACID [Suspect]
     Active Substance: FOLIC ACID
     Indication: Anaemia folate deficiency
     Dosage: THE MORNING
     Route: 048
     Dates: start: 20250616
  3. XARELTO [Suspect]
     Active Substance: RIVAROXABAN
     Indication: Stent placement
     Dosage: 80 MG MORNING AND EVENING
     Route: 048
     Dates: start: 20250527, end: 20250715
  4. ALFUZOSIN [Suspect]
     Active Substance: ALFUZOSIN
     Indication: Prostatic adenoma
     Dosage: THE MORNING, ALFUZOSIN HYDROCHLORIDE
     Route: 048
     Dates: start: 20250616
  5. MELATONIN [Suspect]
     Active Substance: MELATONIN
     Indication: Sleep disorder
     Dosage: AT BEDTIME
     Route: 048
     Dates: start: 20250616

REACTIONS (2)
  - Thrombocytopenia [Recovered/Resolved]
  - Cholestasis [Recovered/Resolved]

NARRATIVE: CASE EVENT DATE: 20250616
